FAERS Safety Report 4285789-7 (Version None)
Quarter: 2004Q1

REPORT INFORMATION
  Report Type: 
  Country: None (occurrence: None)
  Receive Date: 20040203
  Receipt Date: 20040123
  Transmission Date: 20041129
  Serious: Yes (Hospitalization)
  Sender: FDA-Public Use
  Company Number: NO-JNJFOC-20040102364

PATIENT
  Age: 51 Year
  Sex: Male

DRUGS (10)
  1. REMICADE [Suspect]
     Indication: ANKYLOSING SPONDYLITIS
     Dosage: 400 MG, 1 IN 1 DAY, INTRAVENOUS
     Route: 042
     Dates: start: 20031124, end: 20031124
  2. REMICADE [Suspect]
     Indication: ANKYLOSING SPONDYLITIS
     Dosage: 400 MG, 1 IN 1 DAY, INTRAVENOUS
     Route: 042
     Dates: start: 20031208, end: 20031208
  3. COAPROVEL (KARVEA HCT) TABLETS [Suspect]
     Indication: HYPERTENSION
     Dosage: , 1 IN 1 DAY, ORAL
     Route: 048
  4. DICLOFENAC SODIUM [Suspect]
     Indication: ANTIINFLAMMATORY THERAPY
     Dosage: RECTAL
     Route: 054
  5. PREDNISOLONE [Suspect]
     Indication: ANKYLOSING SPONDYLITIS
     Dosage: 5 MG, 1 IN 1 DAY, ORAL
     Route: 048
  6. METHOTREXATE [Suspect]
     Indication: ANKYLOSING SPONDYLITIS
     Dosage: 20 MG, 1 IN 1 WEEK, ORAL
     Route: 048
     Dates: start: 20030124
  7. ESOMEPRAZOLE (ESOMEPRAZOLE) TABLETS [Concomitant]
  8. INSULIN INSULATARD (INSULIN INJECTION, ISOPHANE) INJECTION [Concomitant]
  9. ALENDRONATE (ALENDRONATE SODIUM) TABLETS [Concomitant]
  10. FOLIC ACID (FOLIC ACID) TABLETS [Concomitant]

REACTIONS (5)
  - DEHYDRATION [None]
  - PALPITATIONS [None]
  - RENAL FAILURE [None]
  - SALMONELLOSIS [None]
  - SEPSIS [None]
